FAERS Safety Report 8916379 (Version 2)
Quarter: 2012Q4

REPORT INFORMATION
  Report Type: 
  Country: FR (occurrence: FR)
  Receive Date: 20121120
  Receipt Date: 20121130
  Transmission Date: 20130627
  Serious: Yes (Hospitalization)
  Sender: FDA-Public Use
  Company Number: FR-ABBOTT-12P-056-1001424-00

PATIENT
  Sex: Female

DRUGS (1)
  1. HUMIRA 40MG/0.4ML [Suspect]
     Indication: MATERNAL EXPOSURE TIMING UNSPECIFIED
     Route: 064

REACTIONS (4)
  - Angioedema [Unknown]
  - Foetal exposure during pregnancy [Unknown]
  - Milk allergy [Unknown]
  - Food allergy [Not Recovered/Not Resolved]
